FAERS Safety Report 9410507 (Version 1)
Quarter: 2013Q3

REPORT INFORMATION
  Report Type: Report from Study
  Country: GB (occurrence: GB)
  Receive Date: 20130719
  Receipt Date: 20130719
  Transmission Date: 20140515
  Serious: Yes (Other)
  Sender: FDA-Public Use
  Company Number: GB-JNJFOC-20130516406

PATIENT
  Age: 48 Year
  Sex: Male
  Weight: 89 kg

DRUGS (1)
  1. SIMPONI [Suspect]
     Indication: PSORIATIC ARTHROPATHY
     Route: 058
     Dates: start: 20130205, end: 20130417

REACTIONS (1)
  - Staphylococcal abscess [Recovered/Resolved]
